FAERS Safety Report 8263573-7 (Version None)
Quarter: 2012Q2

REPORT INFORMATION
  Report Type: 
  Country: None (occurrence: None)
  Receive Date: 20120405
  Receipt Date: 20120321
  Transmission Date: 20120825
  Serious: Yes (Other)
  Sender: FDA-Public Use
  Company Number: CHPA2012US005551

PATIENT
  Age: 64 Year
  Sex: Female

DRUGS (4)
  1. TRANSDERM SCOP [Suspect]
     Dosage: 1 DF, Q72H
     Route: 062
  2. TRANSDERM SCOP [Suspect]
     Dosage: 1 DF, Q96H
     Route: 062
     Dates: start: 20060101
  3. TRANSDERM SCOP [Suspect]
     Indication: MOTION SICKNESS
     Dosage: 1 DF, QD
     Route: 062
     Dates: start: 20060101, end: 20060101
  4. TRANSDERM SCOP [Suspect]
     Dosage: 1 DF, PRN
     Route: 062

REACTIONS (11)
  - OSTEONECROSIS [None]
  - OVERDOSE [None]
  - INAPPROPRIATE SCHEDULE OF DRUG ADMINISTRATION [None]
  - ARTHRALGIA [None]
  - VISION BLURRED [None]
  - DIZZINESS [None]
  - ESCHERICHIA INFECTION [None]
  - NAUSEA [None]
  - FALL [None]
  - UNDERDOSE [None]
  - WITHDRAWAL SYNDROME [None]
